FAERS Safety Report 17291723 (Version 1)
Quarter: 2020Q1

REPORT INFORMATION
  Report Type: Spontaneous
  Country: FI (occurrence: FI)
  Receive Date: 20200121
  Receipt Date: 20200121
  Transmission Date: 20200409
  Serious: Yes (Other)
  Sender: FDA-Public Use
  Company Number: FI-BAYER-2020-005658

PATIENT
  Age: 30 Year
  Sex: Female

DRUGS (1)
  1. MIRENA [Suspect]
     Active Substance: LEVONORGESTREL
     Dosage: 20 MCG/24HR, CONT
     Route: 015
     Dates: start: 20200102

REACTIONS (3)
  - Procedural pain [None]
  - Post procedural haemorrhage [None]
  - Dysmenorrhoea [None]

NARRATIVE: CASE EVENT DATE: 202001
